FAERS Safety Report 5020720-8 (Version None)
Quarter: 2006Q2

REPORT INFORMATION
  Report Type: 
  Country: None (occurrence: None)
  Receive Date: 20060601
  Receipt Date: 20060523
  Transmission Date: 20061013
  Serious: Yes (Other)
  Sender: FDA-Public Use
  Company Number: 2006BH009370

PATIENT
  Age: 33 Year
  Sex: Female

DRUGS (2)
  1. MORPHINE SULFATE [Suspect]
     Indication: SPINAL ANAESTHESIA
     Dosage: 100 UG;ONCE;ISPIN
     Route: 024
  2. BUPIVACAINE [Suspect]
     Indication: SPINAL ANAESTHESIA
     Dosage: 10 MG;ONCE;ISPIN
     Route: 024

REACTIONS (3)
  - ANAESTHETIC COMPLICATION [None]
  - HYPOTHERMIA [None]
  - OBSTETRIC PROCEDURE COMPLICATION [None]
